FAERS Safety Report 7442686-3 (Version None)
Quarter: 2011Q2

REPORT INFORMATION
  Report Type: 
  Country: None (occurrence: None)
  Receive Date: 20110428
  Receipt Date: 20110418
  Transmission Date: 20111010
  Serious: Yes (Hospitalization)
  Sender: FDA-Public Use
  Company Number: US-ASTRAZENECA-2010SE31254

PATIENT
  Age: 21419 Day
  Sex: Male
  Weight: 112.5 kg

DRUGS (7)
  1. ASPIRIN [Concomitant]
     Indication: THROMBOSIS
     Route: 048
     Dates: start: 20051114
  2. MULTI-VITAMIN [Concomitant]
     Route: 048
     Dates: start: 20051114
  3. SEROQUEL [Suspect]
     Route: 048
     Dates: start: 20050701
  4. SEROQUEL [Suspect]
     Route: 048
     Dates: start: 20050701
  5. SEROQUEL [Suspect]
     Indication: SLEEP DISORDER
     Dosage: 25 TO 50 MG
     Route: 048
     Dates: start: 20010301, end: 20051001
  6. SEROQUEL [Suspect]
     Indication: NIGHTMARE
     Dosage: 25 TO 50 MG
     Route: 048
     Dates: start: 20010301, end: 20051001
  7. NORTRIPTYLINE [Concomitant]
     Dosage: 25 MG TO 50 MG
     Dates: start: 20050101

REACTIONS (6)
  - DIABETIC NEUROPATHY [None]
  - SYNCOPE [None]
  - HYPERLIPIDAEMIA [None]
  - NICOTINE DEPENDENCE [None]
  - HYPERTENSION [None]
  - TYPE 2 DIABETES MELLITUS [None]
